FAERS Safety Report 8257942-9 (Version None)
Quarter: 2012Q2

REPORT INFORMATION
  Report Type: 
  Country: None (occurrence: None)
  Receive Date: 20120404
  Receipt Date: 20120328
  Transmission Date: 20120825
  Serious: Yes (Hospitalization, Other)
  Sender: FDA-Public Use
  Company Number: US-BAYER-201033459NA

PATIENT
  Age: 28 Year
  Sex: Female
  Weight: 68.027 kg

DRUGS (8)
  1. YAZ [Suspect]
  2. NYQUIL [Concomitant]
  3. YASMIN [Suspect]
     Route: 065
  4. GUAIFENESIN [Concomitant]
  5. ZITHROMAX [Concomitant]
  6. AMBIEN [Concomitant]
     Indication: INSOMNIA
     Dosage: UNK
     Dates: start: 20060410
  7. PROVENTIL [Concomitant]
     Indication: DYSPNOEA
     Dosage: 2 PUFFS 4 TIMES A DAY AS NEEDED
     Route: 045
     Dates: start: 20031215
  8. CYSTEX [Concomitant]

REACTIONS (19)
  - CARDIOMEGALY [None]
  - COR PULMONALE [None]
  - PULMONARY HYPERTENSION [None]
  - PULMONARY EMBOLISM [None]
  - PYELONEPHRITIS [None]
  - INSOMNIA [None]
  - DYSPNOEA [None]
  - DEPRESSION [None]
  - OVARIAN CYST [None]
  - BRONCHITIS [None]
  - BRONCHOSPASM [None]
  - ANXIETY [None]
  - PULMONARY FIBROSIS [None]
  - PULMONARY INFARCTION [None]
  - SYNCOPE [None]
  - GENITAL HERPES [None]
  - THROMBOSIS [None]
  - BLOOD PRESSURE DECREASED [None]
  - GASTROOESOPHAGEAL REFLUX DISEASE [None]
